FAERS Safety Report 8387581-0 (Version None)
Quarter: 2012Q2

REPORT INFORMATION
  Report Type: 
  Country: None (occurrence: None)
  Receive Date: 20120525
  Receipt Date: 20120522
  Transmission Date: 20120825
  Serious: Yes (Other)
  Sender: FDA-Public Use
  Company Number: PHEH2007US12631

PATIENT
  Sex: Female
  Weight: 88.435 kg

DRUGS (75)
  1. ZOMETA [Suspect]
     Indication: MULTIPLE MYELOMA
     Dosage: 4MG MONTHLY
     Route: 042
     Dates: end: 20050601
  2. HYDROCODONE BITARTRATE [Concomitant]
  3. SENNOSIDE [Concomitant]
     Dosage: 8.6 MG
  4. ACYCLOVIR [Concomitant]
     Dosage: 800 MG
  5. PERCOCET [Concomitant]
     Dosage: UNK
  6. LEVAQUIN [Concomitant]
     Dosage: 250 MG / DIALY
  7. AMPICILLIN [Concomitant]
     Dosage: 500 MG / BID
     Route: 048
     Dates: start: 20050907
  8. NISOLDIPINE [Concomitant]
  9. CHEMOTHERAPEUTICS NOS [Concomitant]
  10. MILK OF MAGNESIA TAB [Concomitant]
     Dosage: UNK
  11. METRONIDAZOLE [Concomitant]
     Dosage: 250 MG
  12. SODIUM CHLORIDE [Concomitant]
     Dosage: 1000 ML
  13. PREMARIN [Concomitant]
     Dosage: UNK
  14. NYSTATIN [Concomitant]
  15. MECLIZINE HYDROCHLORIDE [Concomitant]
  16. FLUCONAZOLE [Concomitant]
  17. MELPHALAN [Concomitant]
  18. PREDNISONE TAB [Concomitant]
  19. IRON [Concomitant]
  20. NORVASC [Concomitant]
  21. CATAPRES-TTS-1 [Concomitant]
     Dosage: 2 PATCH WEEKLY
     Route: 062
     Dates: start: 19951108
  22. POTASSIUM CHLORIDE [Concomitant]
  23. GABAPENTIN [Concomitant]
     Dosage: UNK
  24. PETROLATUM [Concomitant]
     Dosage: UNK
     Route: 061
  25. UNASYN [Concomitant]
     Dosage: UNK
  26. INSULIN HUMAN INJECTION, ISOPHANE [Concomitant]
     Dosage: UNK
  27. MACROBID [Concomitant]
     Dosage: 100 MG
  28. NITROFURAN [Concomitant]
     Dosage: 100 MG
  29. OXYBUTYNIN [Concomitant]
     Dosage: 4 MG / BID
     Route: 048
  30. GLIPIZIDE [Concomitant]
     Dosage: UNK
  31. SIMVASTATIN [Concomitant]
  32. TRAZODONE HYDROCHLORIDE [Concomitant]
  33. ACETAMINOPHEN W/ CODEINE [Concomitant]
  34. NASONEX [Concomitant]
  35. ALLEGRA [Concomitant]
  36. RHINOCORT [Concomitant]
  37. PROTONIX [Concomitant]
  38. PAROXETINE [Concomitant]
  39. RANITIDINE [Concomitant]
  40. MORPHINE SULFATE [Concomitant]
     Dosage: UNK
  41. PROMETHAZINE HYDROCHLORIDE [Concomitant]
     Dosage: 25 MG
  42. TRIAMCINOLONE [Concomitant]
  43. PHENERGAN [Concomitant]
  44. AREDIA [Suspect]
     Indication: MULTIPLE MYELOMA
     Dosage: 90MG MONTHLY
  45. DOCUSATE [Concomitant]
     Dosage: 100 MG
  46. PENICILLIN VK [Concomitant]
     Dosage: 250 MG
  47. PAXIL [Concomitant]
     Dosage: UNK
  48. PIROXICAM [Concomitant]
  49. DECADRON [Concomitant]
     Dosage: 40 MG, UNK
     Dates: start: 20060119
  50. CALCIUM [Concomitant]
  51. SULAR [Concomitant]
  52. CHLORHEXIDINE GLUCONATE [Concomitant]
     Dosage: UNK
  53. HEMORRHOIDAL [Concomitant]
     Dosage: UNK
  54. CIPROFLOXACIN HCL [Concomitant]
     Dosage: 500 MG
  55. HEPARIN-INJEKT [Concomitant]
     Dosage: UNK
  56. NIFEDIPINE [Concomitant]
     Dosage: UNK
  57. AUGMENTIN '125' [Concomitant]
  58. ERYTHROMYCIN [Concomitant]
  59. HYDROXYZINE [Concomitant]
  60. MS CONTIN [Concomitant]
  61. HYDRALAZINE HCL [Concomitant]
  62. DEXAMETHASONE [Concomitant]
     Dosage: 4 MG
  63. ZANTAC [Concomitant]
     Dosage: UNK
  64. TYLENOL [Concomitant]
  65. THALIDOMIDE [Concomitant]
     Dosage: 100 MG, UNK
     Dates: start: 20060119, end: 20071001
  66. ASPIRIN [Concomitant]
     Dosage: 325 MG
  67. LORATADINE [Concomitant]
     Dosage: 10 MG
  68. CLOTRIMAZOLE [Concomitant]
     Dosage: UNK
     Route: 061
  69. CLONIDINE [Concomitant]
     Dosage: UNK
  70. POTASSIUM CHLORIDE [Concomitant]
     Dosage: UNK
  71. DIFLUCAN [Concomitant]
     Dosage: SINGEL DOSE
     Dates: start: 20050907
  72. LORTAB [Concomitant]
  73. AFRIN                              /00070002/ [Concomitant]
  74. LUMIGAN [Concomitant]
  75. POTASSIUM CHLORIDE [Concomitant]

REACTIONS (100)
  - INTERVERTEBRAL DISC SPACE NARROWING [None]
  - URINARY TRACT INFECTION [None]
  - GINGIVAL DISORDER [None]
  - GINGIVAL BLEEDING [None]
  - TOOTH DISORDER [None]
  - BONE DISORDER [None]
  - ERYTHEMA [None]
  - CATARACT [None]
  - RECTAL HAEMORRHAGE [None]
  - GAIT DISTURBANCE [None]
  - RHINORRHOEA [None]
  - LIFE EXPECTANCY SHORTENED [None]
  - PURULENCE [None]
  - PRESBYOPIA [None]
  - EXOSTOSIS [None]
  - LYMPHADENOPATHY [None]
  - VAGINAL INFECTION [None]
  - MASS [None]
  - HYPERLIPIDAEMIA [None]
  - OBESITY [None]
  - AORTIC VALVE INCOMPETENCE [None]
  - AORTIC ARTERIOSCLEROSIS [None]
  - CHRONIC SINUSITIS [None]
  - NIGHT SWEATS [None]
  - CYSTITIS [None]
  - ASTHMA [None]
  - INTERVERTEBRAL DISC DEGENERATION [None]
  - SCOLIOSIS [None]
  - DIVERTICULUM [None]
  - HYPOKALAEMIA [None]
  - ANAEMIA [None]
  - SKIN ODOUR ABNORMAL [None]
  - PULMONARY VASCULAR DISORDER [None]
  - PLEURAL EFFUSION [None]
  - SINUS DISORDER [None]
  - BONE PAIN [None]
  - OROPHARYNGEAL PAIN [None]
  - CHEST PAIN [None]
  - EYE PAIN [None]
  - MOUTH ULCERATION [None]
  - PAIN [None]
  - BIOPSY GINGIVAL [None]
  - HEPATIC CYST [None]
  - ATELECTASIS [None]
  - ASTHENIA [None]
  - WALKING AID USER [None]
  - OEDEMA PERIPHERAL [None]
  - GASTROOESOPHAGEAL REFLUX DISEASE [None]
  - SKIN CANDIDA [None]
  - HAEMORRHOIDS [None]
  - ABDOMINAL PAIN [None]
  - FIBROUS HISTIOCYTOMA [None]
  - PNEUMONIA [None]
  - SPONDYLOLISTHESIS [None]
  - BACK PAIN [None]
  - OSTEOPENIA [None]
  - DEFORMITY [None]
  - SWELLING [None]
  - PYREXIA [None]
  - CHILLS [None]
  - GLAUCOMA [None]
  - SLEEP DISORDER [None]
  - ORTHOPNOEA [None]
  - HEADACHE [None]
  - BLADDER CANCER [None]
  - HAEMATURIA [None]
  - OSTEONECROSIS OF JAW [None]
  - EMOTIONAL DISTRESS [None]
  - GINGIVITIS [None]
  - PAIN IN JAW [None]
  - GINGIVAL OEDEMA [None]
  - ENTEROVESICAL FISTULA [None]
  - RENAL CYST [None]
  - INTESTINAL OBSTRUCTION [None]
  - OSTEOARTHRITIS [None]
  - MITRAL VALVE INCOMPETENCE [None]
  - VOMITING [None]
  - DYSAESTHESIA [None]
  - SPINAL OSTEOARTHRITIS [None]
  - MULTIPLE MYELOMA [None]
  - ESCHERICHIA INFECTION [None]
  - HYPOPHAGIA [None]
  - PLASMACYTOSIS [None]
  - DEPRESSION [None]
  - HAEMATEMESIS [None]
  - DYSPNOEA [None]
  - ARTHRALGIA [None]
  - EAR INFECTION [None]
  - GASTROINTESTINAL HAEMORRHAGE [None]
  - MELAENA [None]
  - LIPOMA [None]
  - ANXIETY [None]
  - ANHEDONIA [None]
  - TOOTHACHE [None]
  - APHTHOUS STOMATITIS [None]
  - TOOTH ABSCESS [None]
  - ORAL PAIN [None]
  - CARDIOMEGALY [None]
  - SLEEP APNOEA SYNDROME [None]
  - PRURITUS [None]
